FAERS Safety Report 8643796 (Version 2)
Quarter: 2013Q3

REPORT INFORMATION
  Report Type: Spontaneous
  Country: GB (occurrence: GB)
  Receive Date: 20120629
  Receipt Date: 20130722
  Transmission Date: 20140515
  Serious: Yes (Death, Other)
  Sender: FDA-Public Use
  Company Number: GB-PFIZER INC-2012154567

PATIENT
  Age: 34 Year
  Sex: Male

DRUGS (3)
  1. CHAMPIX [Suspect]
     Indication: SMOKING CESSATION THERAPY
     Dosage: 0.5 MG, DAILY DOSE
     Route: 048
     Dates: start: 201010, end: 2010
  2. CHAMPIX [Suspect]
     Dosage: 0.5 MG, 2X/DAY
     Route: 048
     Dates: start: 2010, end: 2010
  3. CHAMPIX [Suspect]
     Dosage: 1 MG, 2X/DAY
     Route: 048
     Dates: start: 2010, end: 2010

REACTIONS (15)
  - Completed suicide [Fatal]
  - Multiple injuries [Fatal]
  - Irritability [Unknown]
  - Agitation [Unknown]
  - Personality change [Unknown]
  - Negative thoughts [Unknown]
  - Frustration [Unknown]
  - Abnormal behaviour [Unknown]
  - Anger [Unknown]
  - Anxiety [Unknown]
  - Blood ethanol increased [Unknown]
  - Sleep disorder [Unknown]
  - Increased appetite [Unknown]
  - Diarrhoea [Unknown]
  - Nausea [Unknown]
